FAERS Safety Report 5054160-2 (Version None)
Quarter: 2006Q3

REPORT INFORMATION
  Report Type: 
  Country: None (occurrence: None)
  Receive Date: 20060718
  Receipt Date: 20060707
  Transmission Date: 20061208
  Serious: Yes (Other)
  Sender: FDA-Public Use
  Company Number: 2006AC01260

PATIENT
  Age: 59 Year

DRUGS (1)
  1. PROPOFOL [Suspect]
     Indication: INDUCTION OF ANAESTHESIA

REACTIONS (1)
  - ELECTROENCEPHALOGRAM ABNORMAL [None]
